FAERS Safety Report 8610326-3 (Version None)
Quarter: 2012Q3

REPORT INFORMATION
  Report Type: 
  Country: None (occurrence: None)
  Receive Date: 20120822
  Receipt Date: 20120813
  Transmission Date: 20120928
  Serious: No
  Sender: FDA-Public Use
  Company Number: PHEH2012US004209

PATIENT
  Sex: Female
  Weight: 72.109 kg

DRUGS (6)
  1. HYDROXYZINE [Concomitant]
     Dosage: 25 MG, PRN
  2. TASIGNA [Suspect]
     Dosage: 300 MG, BID
     Route: 048
  3. ASPIRIN [Concomitant]
     Dosage: 81 MG, QD
  4. TASMAR [Concomitant]
     Dosage: 2 DF, BID
  5. TASIGNA [Suspect]
     Indication: CHRONIC MYELOID LEUKAEMIA
     Dosage: 300 MG, BID
     Route: 048
     Dates: start: 20110907
  6. COLACE [Concomitant]
     Dosage: 50 MG, QD

REACTIONS (7)
  - DRY SKIN [None]
  - FATIGUE [None]
  - PRURITUS [None]
  - EXFOLIATIVE RASH [None]
  - RASH [None]
  - MEMORY IMPAIRMENT [None]
  - ABNORMAL BEHAVIOUR [None]
